FAERS Safety Report 4394363-3 (Version None)
Quarter: 2004Q3

REPORT INFORMATION
  Report Type: 
  Country: None (occurrence: None)
  Receive Date: 20040709
  Receipt Date: 20040709
  Transmission Date: 20050211
  Serious: No
  Sender: FDA-Public Use
  Company Number: None

PATIENT
  Sex: Female
  Weight: 65.318 kg

DRUGS (2)
  1. ESTRACE [Suspect]
     Indication: BLOOD TESTOSTERONE DECREASED
     Dosage: 1 PO QD
     Route: 048
     Dates: start: 20031013
  2. ESTRACE [Suspect]
     Indication: MENOPAUSE
     Dosage: 1 PO QD
     Route: 048
     Dates: start: 20031013

REACTIONS (5)
  - FATIGUE [None]
  - HEADACHE [None]
  - OEDEMA PERIPHERAL [None]
  - VISUAL DISTURBANCE [None]
  - WEIGHT INCREASED [None]
